FAERS Safety Report 18687075 (Version 1)
Quarter: 2020Q4

REPORT INFORMATION
  Report Type: Spontaneous
  Country: US (occurrence: US)
  Receive Date: 20201231
  Receipt Date: 20201231
  Transmission Date: 20210114
  Serious: No
  Sender: FDA-Public Use
  Company Number: US-LUPIN PHARMACEUTICALS INC.-2020-08345

PATIENT
  Age: 17 Year
  Sex: Female
  Weight: 64.85 kg

DRUGS (1)
  1. MY WAY [Suspect]
     Active Substance: LEVONORGESTREL
     Indication: ORAL CONTRACEPTION
     Dosage: 1.5 MILLIGRAM
     Route: 048
     Dates: start: 20201027, end: 20201027

REACTIONS (2)
  - Retching [Unknown]
  - Vomiting [Unknown]

NARRATIVE: CASE EVENT DATE: 20201027
